FAERS Safety Report 25927927 (Version 2)
Quarter: 2025Q4

REPORT INFORMATION
  Report Type: Spontaneous
  Country: CA (occurrence: CA)
  Receive Date: 20251016
  Receipt Date: 20251113
  Transmission Date: 20260118
  Serious: Yes (Disabling, Other)
  Sender: BAXTER
  Company Number: CA-BAXTER-2025BAX022616

PATIENT
  Age: 67 Year
  Sex: Male
  Weight: 88 kg

DRUGS (7)
  1. TISSEEL (FACTOR XIII CONCENTRATE (HUMAN)\FIBRINOGEN HUMAN\THROMBIN HUM [Suspect]
     Active Substance: APROTININ\CALCIUM CHLORIDE\FACTOR XIII CONCENTRATE (HUMAN)\FIBRINOGEN HUMAN\THROMBIN
     Indication: Tissue sealing
     Dosage: 2 ML, FREQUENCY: 1X ONCE (QUANTITY ADMINISTERED FRACTION: 4/4 (2 ML))
     Route: 014
     Dates: start: 20250227, end: 20250227
  2. AMLODIPINE BESYLATE [Concomitant]
     Active Substance: AMLODIPINE BESYLATE
     Dosage: 5 MG, QD
     Route: 048
     Dates: start: 20240423, end: 20250227
  3. DUTASTERIDE [Concomitant]
     Active Substance: DUTASTERIDE
     Dosage: 0.5 MG, QD
     Route: 048
     Dates: start: 20240423, end: 20250227
  4. FEBUXOSTAT [Concomitant]
     Active Substance: FEBUXOSTAT
     Dosage: 80 MG, QD
     Route: 048
  5. ROSUVASTATIN [Concomitant]
     Active Substance: ROSUVASTATIN
     Dosage: 5 MG, QD
     Route: 048
     Dates: start: 20240423, end: 20250227
  6. TYLENOL [Concomitant]
     Active Substance: ACETAMINOPHEN
     Indication: Prophylaxis
     Dosage: 975 MG (AT 09:30 A.M)
     Route: 048
     Dates: start: 20250227
  7. ANCEF [Concomitant]
     Active Substance: CEFAZOLIN SODIUM
     Indication: Prophylaxis
     Dosage: 2 G
     Route: 042
     Dates: start: 20250227

REACTIONS (12)
  - Nerve compression [Not Recovered/Not Resolved]
  - Osteonecrosis [Unknown]
  - Oedema peripheral [Recovering/Resolving]
  - Pain in extremity [Recovering/Resolving]
  - Blister [Recovering/Resolving]
  - Musculoskeletal stiffness [Not Recovered/Not Resolved]
  - Hypoaesthesia [Unknown]
  - General physical health deterioration [Not Recovered/Not Resolved]
  - Inflammation [Unknown]
  - Axonal neuropathy [Not Recovered/Not Resolved]
  - Ligament rupture [Unknown]
  - Arthritis [Unknown]

NARRATIVE: CASE EVENT DATE: 20250301
